FAERS Safety Report 4474568-3 (Version None)
Quarter: 2004Q4

REPORT INFORMATION
  Report Type: 
  Country: None (occurrence: None)
  Receive Date: 20041012
  Receipt Date: 20040928
  Transmission Date: 20050328
  Serious: Yes (Hospitalization, Other)
  Sender: FDA-Public Use
  Company Number: HQWYE461930SEP04

PATIENT
  Age: 23 Year
  Sex: Male

DRUGS (1)
  1. PANTOZOL (PANTOPRAZOLE, UNSPEC) [Suspect]
     Indication: NAUSEA
     Dosage: 40 MG 1X PER 1 DAY

REACTIONS (5)
  - HAEMODIALYSIS [None]
  - NAUSEA [None]
  - NEPHRITIS INTERSTITIAL [None]
  - RENAL FAILURE ACUTE [None]
  - VOMITING [None]
